FAERS Safety Report 4318376-2 (Version None)
Quarter: 2004Q1

REPORT INFORMATION
  Report Type: 
  Country: None (occurrence: None)
  Receive Date: 20040315
  Receipt Date: 20040303
  Transmission Date: 20041129
  Serious: Yes (Hospitalization)
  Sender: FDA-Public Use
  Company Number: GB-JNJFOC-20040300888

PATIENT
  Age: 63 Year
  Sex: Female

DRUGS (9)
  1. REMICADE [Suspect]
     Indication: RHEUMATOID ARTHRITIS
     Dosage: 210 MG, INTRAVENOUS
     Route: 042
     Dates: start: 20030514
  2. SULFASALAZINE [Concomitant]
  3. HYPROMELLOSE (HYPROMELLOSE) [Concomitant]
  4. DICLOFENAC SODIUM [Concomitant]
  5. DIHYDROCODEINE (DIHYDROCODEINE) [Concomitant]
  6. CALCEOS (LEKOVIT CA) [Concomitant]
  7. NIZATIDINE [Concomitant]
  8. AMITRIPTYLINE HCL [Concomitant]
  9. THYROXINE (LEVOTHYROXINE SODIUM) [Concomitant]

REACTIONS (1)
  - JOINT SWELLING [None]
